FAERS Safety Report 20947982 (Version 1)
Quarter: 2022Q2

REPORT INFORMATION
  Report Type: Report from Study
  Country: US (occurrence: US)
  Receive Date: 20220611
  Receipt Date: 20220611
  Transmission Date: 20220720
  Serious: Yes (Hospitalization, Other)
  Sender: FDA-Public Use
  Company Number: US-TEVA-2022-US-2044024

PATIENT
  Age: 68 Year
  Sex: Female
  Weight: 101.1 kg

DRUGS (15)
  1. METFORMIN [Suspect]
     Active Substance: METFORMIN HYDROCHLORIDE
     Route: 065
  2. KORLYM [Suspect]
     Active Substance: MIFEPRISTONE
     Indication: Product used for unknown indication
     Route: 048
     Dates: start: 20220216, end: 2022
  3. ATORVASTATIN [Concomitant]
     Active Substance: ATORVASTATIN
  4. MIRTAZAPINE [Concomitant]
     Active Substance: MIRTAZAPINE
  5. OLANZAPINE [Concomitant]
     Active Substance: OLANZAPINE
  6. PANTOPRAZOLE [Concomitant]
     Active Substance: PANTOPRAZOLE
  7. PIOGLITAZONE [Concomitant]
     Active Substance: PIOGLITAZONE
  8. TRESIBA [Concomitant]
     Active Substance: INSULIN DEGLUDEC
  9. VITAMIN D [Concomitant]
     Active Substance: VITAMIN D NOS
  10. FERROUS SULFATE [Concomitant]
     Active Substance: FERROUS SULFATE
  11. HAIR SKIN NAILS [Concomitant]
  12. CA + D3 [Concomitant]
  13. KCL [Concomitant]
     Active Substance: POTASSIUM CHLORIDE
  14. ROBITUSSIN (GUAIFENESIN) [Concomitant]
     Active Substance: GUAIFENESIN
  15. ALDACTONE [Concomitant]
     Active Substance: SPIRONOLACTONE

REACTIONS (5)
  - Renal failure [Recovering/Resolving]
  - Nausea [Unknown]
  - Vomiting [Unknown]
  - Fatigue [Unknown]
  - Hypoglycaemia [Unknown]

NARRATIVE: CASE EVENT DATE: 20220509
